FAERS Safety Report 16271068 (Version 3)
Quarter: 2019Q4

REPORT INFORMATION
  Report Type: Spontaneous
  Country: DE (occurrence: DE)
  Receive Date: 20190503
  Receipt Date: 20191007
  Transmission Date: 20200122
  Serious: Yes (Life-Threatening)
  Sender: FDA-Public Use
  Company Number: DE-EISAI MEDICAL RESEARCH-EC-2019-055915

PATIENT
  Age: 79 Year
  Sex: Male

DRUGS (10)
  1. ACETYLSALICYLIC ACID [Concomitant]
     Active Substance: ASPIRIN
     Indication: PRODUCT USED FOR UNKNOWN INDICATION
     Route: 065
  2. PANTOPRAZOL [Concomitant]
     Active Substance: PANTOPRAZOLE SODIUM
     Indication: PRODUCT USED FOR UNKNOWN INDICATION
     Route: 065
  3. LENVATINIB [Suspect]
     Active Substance: LENVATINIB
     Indication: FOLLICULAR THYROID CANCER
     Route: 048
     Dates: start: 201802, end: 20190327
  4. AMLODIPINE [Concomitant]
     Active Substance: AMLODIPINE BESYLATE
     Indication: PRODUCT USED FOR UNKNOWN INDICATION
     Route: 065
  5. L-THYROXIN [Concomitant]
     Active Substance: LEVOTHYROXINE SODIUM
     Indication: PRODUCT USED FOR UNKNOWN INDICATION
     Route: 065
  6. LENVATINIB [Suspect]
     Active Substance: LENVATINIB
     Dosage: DOSE AND FREQUENCY UNKNOWN
     Route: 048
     Dates: start: 20190331
  7. VALSARTAN. [Suspect]
     Active Substance: VALSARTAN
     Dates: start: 201901, end: 20190327
  8. VALSARTAN. [Suspect]
     Active Substance: VALSARTAN
     Indication: HYPERTENSION
     Dates: end: 201812
  9. INSULIN [Concomitant]
     Active Substance: INSULIN NOS
     Indication: PRODUCT USED FOR UNKNOWN INDICATION
     Dosage: DOSE AND FREQUENCY UNKNOWN
     Route: 065
  10. LIOTHYRONIN [Concomitant]
     Active Substance: LIOTHYRONINE SODIUM
     Indication: PRODUCT USED FOR UNKNOWN INDICATION
     Route: 065

REACTIONS (4)
  - Acute kidney injury [Recovering/Resolving]
  - Sinus arrest [Recovering/Resolving]
  - Rhythm idioventricular [Recovering/Resolving]
  - Hyperkalaemia [Recovering/Resolving]

NARRATIVE: CASE EVENT DATE: 201811
